FAERS Safety Report 5912032-2 (Version None)
Quarter: 2008Q4

REPORT INFORMATION
  Report Type: 
  Country: None (occurrence: None)
  Receive Date: 20081008
  Receipt Date: 20080924
  Transmission Date: 20090506
  Serious: Yes (Hospitalization)
  Sender: FDA-Public Use
  Company Number: GB-PFIZER INC-2007107116

PATIENT
  Sex: Female

DRUGS (1)
  1. ZITHROMAX [Suspect]
     Indication: CHLAMYDIAL INFECTION
     Route: 048
     Dates: start: 20071111

REACTIONS (2)
  - DRUG EXPOSURE DURING PREGNANCY [None]
  - STAPHYLOCOCCAL SKIN INFECTION [None]
